FAERS Safety Report 4740364-2 (Version None)
Quarter: 2005Q3

REPORT INFORMATION
  Report Type: 
  Country: None (occurrence: None)
  Receive Date: 20050801
  Receipt Date: 20050124
  Transmission Date: 20060218
  Serious: Yes (Other)
  Sender: FDA-Public Use
  Company Number: HQWYE859426JAN05

PATIENT
  Age: 15 Year
  Sex: Female
  Weight: 59.02 kg

DRUGS (1)
  1. MINOCIN [Suspect]
     Indication: ACNE
     Dosage: EVERYDAY, ORAL
     Route: 048
     Dates: start: 20030801, end: 20041101

REACTIONS (3)
  - ANTINUCLEAR ANTIBODY POSITIVE [None]
  - ARTHRALGIA [None]
  - RED BLOOD CELL SEDIMENTATION RATE DECREASED [None]
